FAERS Safety Report 4331587-5 (Version None)
Quarter: 2004Q2

REPORT INFORMATION
  Report Type: 
  Country: None (occurrence: None)
  Receive Date: 20040405
  Receipt Date: 20040323
  Transmission Date: 20050107
  Serious: Yes (Hospitalization, Other)
  Sender: FDA-Public Use
  Company Number: US-MERCK-0403USA02154

PATIENT
  Age: 60 Year
  Sex: Male
  Weight: 115 kg

DRUGS (15)
  1. ALBUTEROL [Concomitant]
     Route: 065
  2. COMBIVENT [Concomitant]
     Route: 065
  3. ATENOLOL [Concomitant]
     Indication: HYPERTENSION
     Route: 065
     Dates: start: 19850101
  4. WELLBUTRIN [Concomitant]
     Route: 065
     Dates: start: 20030101
  5. CELEBREX [Concomitant]
     Route: 065
  6. ADVAIR DISKUS 100/50 [Concomitant]
     Indication: GENERAL SYMPTOM
     Route: 065
  7. FUROSEMIDE [Concomitant]
     Indication: FLUID RETENTION
     Route: 065
  8. DIAZIDE [Concomitant]
     Indication: FLUID RETENTION
     Route: 065
  9. LITHIUM SULFATE [Concomitant]
     Route: 065
     Dates: start: 20030101, end: 20040101
  10. SANDOSTATIN [Concomitant]
     Indication: CARCINOMA
     Route: 065
  11. PROTONIX [Concomitant]
     Route: 065
  12. PREDNISONE [Concomitant]
     Indication: ARTHRALGIA
     Route: 065
  13. PROCHLORPERAZINE [Concomitant]
     Route: 065
  14. ACIPHEX [Concomitant]
     Route: 065
  15. VIOXX [Suspect]
     Indication: ARTHRALGIA
     Route: 048
     Dates: start: 20030626, end: 20040101

REACTIONS (17)
  - ARTHROPATHY [None]
  - GASTRIC DISORDER [None]
  - GASTROINTESTINAL HAEMORRHAGE [None]
  - GOUT [None]
  - INTESTINAL HAEMORRHAGE [None]
  - INTESTINAL OBSTRUCTION [None]
  - KNEE OPERATION [None]
  - LUNG DISORDER [None]
  - LUNG OPERATION [None]
  - PULMONARY EMBOLISM [None]
  - RECTAL HAEMORRHAGE [None]
  - RHEUMATOID ARTHRITIS [None]
  - SLEEP APNOEA SYNDROME [None]
  - SWELLING [None]
  - SYSTEMIC LUPUS ERYTHEMATOSUS [None]
  - THROMBOSIS [None]
  - ULCER [None]
